FAERS Safety Report 7099550-1 (Version None)
Quarter: 2010Q4

REPORT INFORMATION
  Report Type: 
  Country: None (occurrence: None)
  Receive Date: 20101112
  Receipt Date: 20081107
  Transmission Date: 20110411
  Serious: No
  Sender: FDA-Public Use
  Company Number: US-KINGPHARMUSA00001-K200801283

PATIENT
  Sex: Female
  Weight: 86.168 kg

DRUGS (6)
  1. CYTOMEL [Suspect]
     Indication: HYPOTHYROIDISM
     Dosage: 25 MCG, QD
     Route: 048
     Dates: start: 20080801, end: 20080901
  2. CYTOMEL [Suspect]
     Dosage: 12.5 MCG, QD
     Route: 048
     Dates: start: 20080901, end: 20081001
  3. LEVOXYL [Suspect]
     Indication: HYPOTHYROIDISM
     Dosage: 88 MCG, QD
     Route: 048
     Dates: start: 20080801, end: 20081001
  4. SINGULAIR [Concomitant]
     Dosage: UNK
  5. OCEAN NASAL [Concomitant]
     Dosage: UNK
  6. NASACORT [Concomitant]

REACTIONS (14)
  - ABDOMINAL DISTENSION [None]
  - AMNESIA [None]
  - ANGER [None]
  - COLD SWEAT [None]
  - DEPRESSED MOOD [None]
  - DISSOCIATION [None]
  - DISTURBANCE IN ATTENTION [None]
  - IRITIS [None]
  - IRRITABILITY [None]
  - LIBIDO DECREASED [None]
  - POLYMENORRHOEA [None]
  - PRURITUS GENERALISED [None]
  - SWELLING [None]
  - WEIGHT INCREASED [None]
